FAERS Safety Report 16119156 (Version 1)
Quarter: 2019Q1

REPORT INFORMATION
  Report Type: Spontaneous
  Country: ES (occurrence: ES)
  Receive Date: 20190326
  Receipt Date: 20190326
  Transmission Date: 20190418
  Serious: Yes (Other)
  Sender: FDA-Public Use
  Company Number: ES-TEVA-2019-ES-1027502

PATIENT
  Age: 66 Year
  Sex: Male

DRUGS (6)
  1. ESCITALOPRAM [Suspect]
     Active Substance: ESCITALOPRAM OXALATE
     Indication: SCIATICA
     Dosage: 5 MILLIGRAM DAILY; 1/2-0-0
     Route: 048
     Dates: start: 201901, end: 20190223
  2. ?CIDO ACETILSALIC?LICO 100 MG 30 COMPRIMIDOS [Concomitant]
     Route: 048
  3. NEBIVOLOL 5 MG 28 COMPRIMIDOS [Concomitant]
     Route: 048
  4. ATORVASTATINA 40 MG 28 COMPRIMIDOS [Concomitant]
     Active Substance: ATORVASTATIN
     Route: 048
  5. ZYTRAM BID 75 MG COMPRIMIDOS DE LIBERACION PROLONGADA , 56 COMPRIMIDOS [Interacting]
     Active Substance: TRAMADOL HYDROCHLORIDE
     Indication: SCIATICA
     Dosage: 1-0-1.1ST WEEK 0-0-1, 2ND WEEK 1-0-1 AND CONTINUE TO REVIEW
     Route: 048
     Dates: start: 201901
  6. GABAPENTINA 300 MG C?PSULAS DURAS [Interacting]
     Active Substance: GABAPENTIN
     Indication: SCIATICA
     Dosage: 1-1-1.1ST WEEK 0-0-1, 2ND WEEK 0-1-1, 3RD WEEK 1-1-1 AND CONTINUE UNTIL FURTHER REVIEW
     Route: 048
     Dates: start: 201901

REACTIONS (2)
  - Urinary retention [Recovered/Resolved]
  - Drug interaction [Unknown]

NARRATIVE: CASE EVENT DATE: 20190128
